FAERS Safety Report 12089186 (Version 1)
Quarter: 2016Q1

REPORT INFORMATION
  Report Type: Spontaneous
  Country: US (occurrence: None)
  Receive Date: 20160217
  Receipt Date: 20160217
  Transmission Date: 20160526
  Serious: Yes (Disabling)
  Sender: FDA-Public Use
  Company Number: None

PATIENT
  Age: 72 Year
  Sex: Female

DRUGS (2)
  1. AMOXICILLIN 500 MG AUROBINDO PHARMA [Suspect]
     Active Substance: AMOXICILLIN
     Indication: ANTIBIOTIC PROPHYLAXIS
     Route: 048
     Dates: start: 20160108, end: 20160114
  2. VALSARTAN/HCT 80/12.5 [Suspect]
     Active Substance: HYDROCHLOROTHIAZIDE\VALSARTAN
     Indication: HYPERTENSION
     Route: 048
     Dates: start: 20151201, end: 20160201

REACTIONS (4)
  - Drug ineffective [None]
  - Reaction to colouring [None]
  - Hypersensitivity [None]
  - Headache [None]

NARRATIVE: CASE EVENT DATE: 20160216
